FAERS Safety Report 14506751 (Version 1)
Quarter: 2018Q1

REPORT INFORMATION
  Report Type: Other
  Country: HR (occurrence: HR)
  Receive Date: 20180208
  Receipt Date: 20180208
  Transmission Date: 20180509
  Serious: Yes (Life-Threatening, Hospitalization)
  Sender: FDA-Public Use
  Company Number: HR-NOSTRUM LABORATORIES, INC.-2041657

PATIENT
  Age: 45 Year
  Sex: Male

DRUGS (1)
  1. DAPSONE. [Suspect]
     Active Substance: DAPSONE
     Indication: HYPERSENSITIVITY VASCULITIS

REACTIONS (2)
  - Agranulocytosis [Recovered/Resolved]
  - Methaemoglobinaemia [None]
